FAERS Safety Report 25648120 (Version 4)
Quarter: 2025Q3

REPORT INFORMATION
  Report Type: Spontaneous
  Country: GB (occurrence: GB)
  Receive Date: 20250806
  Receipt Date: 20250819
  Transmission Date: 20251020
  Serious: Yes (Other)
  Sender: IPSEN BIOPHARMACEUTICALS, INC.
  Company Number: GB-IPSEN Group, Research and Development-2025-18944

PATIENT
  Age: 30 Year
  Sex: Male

DRUGS (5)
  1. BOTULINUM TOXIN TYPE A [Suspect]
     Active Substance: BOTULINUM TOXIN TYPE A
     Indication: Skin wrinkling
     Dates: start: 20240502, end: 20240502
  2. BOTULINUM TOXIN TYPE A [Suspect]
     Active Substance: BOTULINUM TOXIN TYPE A
     Indication: Skin wrinkling
     Dates: start: 20230510, end: 20230510
  3. BOTULINUM TOXIN TYPE A [Suspect]
     Active Substance: BOTULINUM TOXIN TYPE A
     Indication: Skin wrinkling
  4. BOTULINUM TOXIN TYPE A [Suspect]
     Active Substance: BOTULINUM TOXIN TYPE A
     Indication: Off label use
  5. BOTOX [Suspect]
     Active Substance: ONABOTULINUMTOXINA
     Indication: Skin wrinkling

REACTIONS (8)
  - Bell^s palsy [Recovering/Resolving]
  - Hypoaesthesia [Unknown]
  - Eyelid disorder [Unknown]
  - Swelling of eyelid [Unknown]
  - Facial asymmetry [Unknown]
  - Eye infection [Recovered/Resolved]
  - Off label use [Unknown]
  - Product preparation issue [Unknown]

NARRATIVE: CASE EVENT DATE: 20230606
